FAERS Safety Report 4554245-0 (Version None)
Quarter: 2004Q4

REPORT INFORMATION
  Report Type: 
  Country: None (occurrence: None)
  Receive Date: 20041222
  Receipt Date: 20040826
  Transmission Date: 20050328
  Serious: No
  Sender: FDA-Public Use
  Company Number: 208746

PATIENT
  Age: 72 Year
  Sex: Male

DRUGS (2)
  1. AVASTIN [Suspect]
     Indication: COLON CANCER
     Dosage: 277 MG, Q2W, INTRAVENOUS
     Route: 042
     Dates: start: 20040712
  2. ANTIVIRAL AGENTS (ANTIVIRAL NOS) [Concomitant]

REACTIONS (1)
  - STOMATITIS [None]
